FAERS Safety Report 17877038 (Version 2)
Quarter: 2020Q2

REPORT INFORMATION
  Report Type: Spontaneous
  Country: CN (occurrence: CN)
  Receive Date: 20200609
  Receipt Date: 20200610
  Transmission Date: 20200714
  Serious: Yes (Hospitalization, Other)
  Sender: FDA-Public Use
  Company Number: CN-JNJFOC-20200601081

PATIENT
  Age: 74 Year
  Sex: Male

DRUGS (1)
  1. XARELTO [Suspect]
     Active Substance: RIVAROXABAN
     Indication: ATRIAL FIBRILLATION
     Dosage: 10 MG, QD
     Route: 048
     Dates: start: 202004, end: 202004

REACTIONS (10)
  - Gingival bleeding [Recovering/Resolving]
  - Epistaxis [Recovering/Resolving]
  - Depressed level of consciousness [Unknown]
  - Speech disorder [Recovering/Resolving]
  - Off label use [Unknown]
  - Cerebral disorder [Unknown]
  - Haemorrhage intracranial [Unknown]
  - Retinal haemorrhage [Recovering/Resolving]
  - Vomiting [Unknown]
  - Head injury [Unknown]

NARRATIVE: CASE EVENT DATE: 202004
